FAERS Safety Report 17316210 (Version 1)
Quarter: 2020Q1

REPORT INFORMATION
  Report Type: Spontaneous
  Country: US (occurrence: US)
  Receive Date: 20200124
  Receipt Date: 20200124
  Transmission Date: 20200409
  Serious: No
  Sender: FDA-Public Use
  Company Number: US-SUNOVION-2020SUN000158

PATIENT
  Sex: Female

DRUGS (3)
  1. LONHALA MAGNAIR [Suspect]
     Active Substance: GLYCOPYRROLATE
     Indication: ASTHMA
     Dosage: 25 ?G/1 ML
     Route: 055
  2. QVAR [Concomitant]
     Active Substance: BECLOMETHASONE DIPROPIONATE
     Dosage: 2 PUFFS, IN THE EVENING
  3. SYMBICORT [Concomitant]
     Active Substance: BUDESONIDE\FORMOTEROL FUMARATE DIHYDRATE
     Dosage: 2 PUFFS, IN THE MORNING

REACTIONS (7)
  - Pallor [Unknown]
  - Cough [Unknown]
  - Respiration abnormal [Unknown]
  - Rash [Unknown]
  - Insomnia [Unknown]
  - Skin discolouration [Unknown]
  - Off label use [Unknown]
